FAERS Safety Report 23357110 (Version 1)
Quarter: 2023Q4

REPORT INFORMATION
  Report Type: Spontaneous
  Country: US (occurrence: None)
  Receive Date: 20231230
  Receipt Date: 20231230
  Transmission Date: 20240110
  Serious: Yes (Other)
  Sender: FDA-Public Use
  Company Number: None

PATIENT
  Age: 39 Year
  Sex: 0

DRUGS (1)
  1. TRASTUZUMAB-QYYP [Suspect]
     Active Substance: TRASTUZUMAB-QYYP

REACTIONS (3)
  - Flushing [None]
  - Chest discomfort [None]
  - Infusion related reaction [None]

NARRATIVE: CASE EVENT DATE: 20231101
